FAERS Safety Report 10233650 (Version 1)
Quarter: 2014Q2

REPORT INFORMATION
  Report Type: Spontaneous
  Country: US (occurrence: None)
  Receive Date: 20140611
  Receipt Date: 20140611
  Transmission Date: 20141212
  Serious: Yes (Hospitalization)
  Sender: FDA-Public Use
  Company Number: None

PATIENT
  Age: 33 Year
  Sex: Female

DRUGS (2)
  1. ENOXAPARIN [Suspect]
     Indication: DEEP VEIN THROMBOSIS
     Route: 058
     Dates: start: 20140205, end: 20140609
  2. ENOXAPARIN [Suspect]
     Indication: EMBOLISM
     Route: 058
     Dates: start: 20140205, end: 20140609

REACTIONS (1)
  - Ill-defined disorder [None]
